FAERS Safety Report 23058557 (Version 1)
Quarter: 2023Q4

REPORT INFORMATION
  Report Type: Spontaneous
  Country: US (occurrence: None)
  Receive Date: 20231011
  Receipt Date: 20231011
  Transmission Date: 20240110
  Serious: Yes (Life-Threatening, Hospitalization)
  Sender: FDA-Public Use
  Company Number: None

PATIENT
  Age: 49 Year
  Sex: Female
  Weight: 90 kg

DRUGS (7)
  1. DUPIXENT [Suspect]
     Active Substance: DUPILUMAB
     Indication: Neurodermatitis
     Dosage: OTHER QUANTITY : 1 INJECTION(S);?OTHER FREQUENCY : EVERY 2 WEEKS;?OTHER ROUTE : INJECTED IN  THIGH O
     Route: 050
     Dates: start: 20230706, end: 20231009
  2. MIMVEY [Concomitant]
     Active Substance: ESTRADIOL\NORETHINDRONE ACETATE
  3. Bio x 4 (probiotic) [Concomitant]
  4. multi- vitamin [Concomitant]
  5. ALLEGRA [Concomitant]
     Active Substance: FEXOFENADINE HYDROCHLORIDE
  6. VITAMIN B12 [Concomitant]
     Active Substance: CYANOCOBALAMIN
  7. ALPHA LIPOIC ACID [Concomitant]
     Active Substance: .ALPHA.-LIPOIC ACID

REACTIONS (15)
  - Hypoaesthesia [None]
  - Nasopharyngitis [None]
  - Middle insomnia [None]
  - Arthralgia [None]
  - Chest discomfort [None]
  - Oropharyngeal pain [None]
  - Pain [None]
  - Rhinorrhoea [None]
  - Chills [None]
  - Chest pain [None]
  - Dyspnoea [None]
  - Dyspnoea exertional [None]
  - Myocardial infarction [None]
  - Myocarditis [None]
  - COVID-19 [None]

NARRATIVE: CASE EVENT DATE: 20231006
